FAERS Safety Report 4527900-6 (Version None)
Quarter: 2004Q4

REPORT INFORMATION
  Report Type: 
  Country: None (occurrence: None)
  Receive Date: 20041215
  Receipt Date: 20041206
  Transmission Date: 20050328
  Serious: Yes (Other)
  Sender: FDA-Public Use
  Company Number: PHFR2004GB04497

PATIENT
  Age: 61 Year
  Sex: Male

DRUGS (2)
  1. DICLOFENAC POTASSIUM [Suspect]
     Dosage: 50MG/DAY
     Route: 048
  2. EZETIMIBE [Suspect]
     Indication: BLOOD CHOLESTEROL INCREASED
     Dosage: 10 MG/DAY
     Route: 048
     Dates: start: 20040831

REACTIONS (7)
  - BODY TEMPERATURE INCREASED [None]
  - DRUG INTERACTION [None]
  - HYPERSENSITIVITY [None]
  - HYPOAESTHESIA [None]
  - PRURITUS GENERALISED [None]
  - RASH ERYTHEMATOUS [None]
  - VOMITING [None]
